FAERS Safety Report 5048704-4 (Version None)
Quarter: 2006Q3

REPORT INFORMATION
  Report Type: 
  Country: None (occurrence: None)
  Receive Date: 20060712
  Receipt Date: 20060704
  Transmission Date: 20061208
  Serious: Yes (Hospitalization, Other)
  Sender: FDA-Public Use
  Company Number: FR-JNJFOC-20060505187

PATIENT
  Age: 72 Year
  Sex: Male

DRUGS (4)
  1. REMICADE [Suspect]
     Indication: RHEUMATOID ARTHRITIS
     Route: 042
  2. CORTANCYL [Concomitant]
  3. ARAVA [Concomitant]
  4. METHOTREXATE [Concomitant]

REACTIONS (1)
  - PROSTATE CANCER [None]
